FAERS Safety Report 14882410 (Version 5)
Quarter: 2019Q3

REPORT INFORMATION
  Report Type: Spontaneous
  Country: DE (occurrence: DE)
  Receive Date: 20180511
  Receipt Date: 20190820
  Transmission Date: 20191004
  Serious: Yes (Other)
  Sender: FDA-Public Use
  Company Number: DE-AUROBINDO-AUR-APL-2018-016925

PATIENT

DRUGS (1)
  1. VENLAFAXINE [Suspect]
     Active Substance: VENLAFAXINE HYDROCHLORIDE
     Indication: PRODUCT USED FOR UNKNOWN INDICATION
     Dosage: 75 MG, QD EXTENDED RELEASE
     Route: 065

REACTIONS (4)
  - Burnout syndrome [Unknown]
  - Blood pressure increased [Unknown]
  - Restless legs syndrome [Unknown]
  - Sleep disorder [Unknown]
